FAERS Safety Report 6907480-8 (Version None)
Quarter: 2010Q3

REPORT INFORMATION
  Report Type: 
  Country: None (occurrence: None)
  Receive Date: 20100805
  Receipt Date: 20100729
  Transmission Date: 20110219
  Serious: No
  Sender: FDA-Public Use
  Company Number: US-BIOGENIDEC-2010BI019100

PATIENT
  Sex: Female

DRUGS (1)
  1. TYSABRI [Suspect]
     Indication: MULTIPLE SCLEROSIS
     Route: 042
     Dates: start: 20090930

REACTIONS (5)
  - EMOTIONAL DISORDER [None]
  - NERVE COMPRESSION [None]
  - SCIATICA [None]
  - SCOLIOSIS [None]
  - TEMPERATURE INTOLERANCE [None]
